FAERS Safety Report 4871713-2 (Version None)
Quarter: 2006Q1

REPORT INFORMATION
  Report Type: 
  Country: None (occurrence: None)
  Receive Date: 20060104
  Receipt Date: 20050812
  Transmission Date: 20060701
  Serious: Yes (Hospitalization)
  Sender: FDA-Public Use
  Company Number: 2005SE04641

PATIENT
  Age: 10260 Day
  Sex: Female
  Weight: 89 kg

DRUGS (4)
  1. QUETIAPINE [Suspect]
     Indication: MENTAL DISORDER
     Route: 048
     Dates: start: 20050301, end: 20050801
  2. VALPROICUM [Concomitant]
     Indication: AFFECTIVE DISORDER
     Route: 048
     Dates: start: 20040126, end: 20050807
  3. VALPROICUM [Concomitant]
     Route: 048
     Dates: start: 20050808, end: 20050927
  4. VALPROICUM [Concomitant]
     Route: 048
     Dates: start: 20050928

REACTIONS (2)
  - DISEASE RECURRENCE [None]
  - SCHIZOAFFECTIVE DISORDER [None]
